FAERS Safety Report 10678532 (Version 6)
Quarter: 2015Q2

REPORT INFORMATION
  Report Type: Spontaneous
  Country: US (occurrence: US)
  Receive Date: 20141229
  Receipt Date: 20150625
  Transmission Date: 20150821
  Serious: Yes (Death, Other)
  Sender: FDA-Public Use
  Company Number: US-MYLANLABS-2014M1011937

PATIENT

DRUGS (19)
  1. AVODART [Concomitant]
     Active Substance: DUTASTERIDE
  2. BENDAMUSTINE [Concomitant]
     Active Substance: BENDAMUSTINE
  3. NOVOLOG [Concomitant]
     Active Substance: INSULIN ASPART
  4. SULFAMETHOXAZOLE AND TRIMETHOPRIM [Concomitant]
     Active Substance: SULFAMETHOXAZOLE\TRIMETHOPRIM
  5. FONDAPARINUX [Suspect]
     Active Substance: FONDAPARINUX
     Indication: ANTICOAGULANT THERAPY
     Dosage: UNK, QD
     Route: 058
     Dates: start: 20140722, end: 20140802
  6. ACYCLOVIR                          /00587301/ [Concomitant]
     Active Substance: ACYCLOVIR
  7. OMEPRAZOLE. [Concomitant]
     Active Substance: OMEPRAZOLE
  8. GABAPENTIN. [Concomitant]
     Active Substance: GABAPENTIN
  9. ALTACE [Concomitant]
     Active Substance: RAMIPRIL
  10. FONDAPARINUX [Suspect]
     Active Substance: FONDAPARINUX
     Indication: MITRAL VALVE REPLACEMENT
  11. BENDAMUSTINE [Suspect]
     Active Substance: BENDAMUSTINE
  12. DEXAMETHASONE. [Concomitant]
     Active Substance: DEXAMETHASONE
  13. FLOMAX [Concomitant]
     Active Substance: TAMSULOSIN HYDROCHLORIDE
  14. ZOFRAN                             /00955301/ [Concomitant]
     Active Substance: ONDANSETRON HYDROCHLORIDE
     Dosage: UNK, PRN
  15. LANTUS [Concomitant]
     Active Substance: INSULIN GLARGINE
  16. DIGOXIN. [Concomitant]
     Active Substance: DIGOXIN
  17. NADOLOL. [Concomitant]
     Active Substance: NADOLOL
  18. INSULIN [Concomitant]
     Active Substance: INSULIN NOS
     Dosage: SLIDING SCALE
  19. BUMEX [Concomitant]
     Active Substance: BUMETANIDE
     Dosage: 1 MG, BID

REACTIONS (2)
  - Internal haemorrhage [Fatal]
  - Plasma cell myeloma [Fatal]

NARRATIVE: CASE EVENT DATE: 201408
